FAERS Safety Report 18073738 (Version 2)
Quarter: 2020Q4

REPORT INFORMATION
  Report Type: Report from Study
  Country: DE (occurrence: DE)
  Receive Date: 20200727
  Receipt Date: 20201020
  Transmission Date: 20210113
  Serious: Yes (Hospitalization)
  Sender: FDA-Public Use
  Company Number: DE-SHIRE-DE202009928

PATIENT

DRUGS (16)
  1. TEDUGLUTIDE [Suspect]
     Active Substance: TEDUGLUTIDE
     Indication: SHORT-BOWEL SYNDROME
     Dosage: 0.046 MILLILITER, 5 MG AMPOULE 1X/DAY:QD
     Route: 058
     Dates: start: 20200219
  2. TEDUGLUTIDE [Suspect]
     Active Substance: TEDUGLUTIDE
     Dosage: 0.046 MILLILITER, 5 MG AMPOULE 1X/DAY:QD
     Route: 058
     Dates: start: 20200219
  3. TEDUGLUTIDE [Suspect]
     Active Substance: TEDUGLUTIDE
     Dosage: 0.046 MILLILITER, 5 MG AMPOULE 1X/DAY:QD
     Route: 058
     Dates: start: 20200219
  4. TEDUGLUTIDE [Suspect]
     Active Substance: TEDUGLUTIDE
     Dosage: UNK
     Route: 058
     Dates: start: 20200718
  5. TEDUGLUTIDE [Suspect]
     Active Substance: TEDUGLUTIDE
     Indication: SHORT-BOWEL SYNDROME
     Dosage: 0.046 MILLILITER, 5 MG AMPOULE 1X/DAY:QD
     Route: 058
     Dates: start: 20200219
  6. TEDUGLUTIDE [Suspect]
     Active Substance: TEDUGLUTIDE
     Dosage: 0.046 MILLILITER, 5 MG AMPOULE 1X/DAY:QD
     Route: 058
     Dates: start: 20200219
  7. TEDUGLUTIDE [Suspect]
     Active Substance: TEDUGLUTIDE
     Dosage: UNK
     Route: 058
     Dates: start: 20200718
  8. TEDUGLUTIDE [Suspect]
     Active Substance: TEDUGLUTIDE
     Dosage: 0.44 MILLILITER, 5 MG AMPOULE, 1X/DAY:QD
     Route: 058
     Dates: start: 20200219, end: 20201011
  9. TEDUGLUTIDE [Suspect]
     Active Substance: TEDUGLUTIDE
     Dosage: 0.44 MILLILITER, 5 MG AMPOULE, 1X/DAY:QD
     Route: 058
     Dates: start: 20200219, end: 20201011
  10. TEDUGLUTIDE [Suspect]
     Active Substance: TEDUGLUTIDE
     Dosage: 0.44 MILLILITER, 5 MG AMPOULE, 1X/DAY:QD
     Route: 058
     Dates: start: 20200219, end: 20201011
  11. TEDUGLUTIDE [Suspect]
     Active Substance: TEDUGLUTIDE
     Indication: SHORT-BOWEL SYNDROME
     Dosage: 0.046 MILLILITER, 5 MG AMPOULE 1X/DAY:QD
     Route: 058
     Dates: start: 20200219
  12. TEDUGLUTIDE [Suspect]
     Active Substance: TEDUGLUTIDE
     Dosage: UNK
     Route: 058
     Dates: start: 20200718
  13. TEDUGLUTIDE [Suspect]
     Active Substance: TEDUGLUTIDE
     Indication: SHORT-BOWEL SYNDROME
     Dosage: 0.046 MILLILITER, 5 MG AMPOULE 1X/DAY:QD
     Route: 058
     Dates: start: 20200219
  14. TEDUGLUTIDE [Suspect]
     Active Substance: TEDUGLUTIDE
     Dosage: 0.046 MILLILITER, 5 MG AMPOULE 1X/DAY:QD
     Route: 058
     Dates: start: 20200219
  15. TEDUGLUTIDE [Suspect]
     Active Substance: TEDUGLUTIDE
     Dosage: UNK
     Route: 058
     Dates: start: 20200718
  16. TEDUGLUTIDE [Suspect]
     Active Substance: TEDUGLUTIDE
     Dosage: 0.44 MILLILITER, 5 MG AMPOULE, 1X/DAY:QD
     Route: 058
     Dates: start: 20200219, end: 20201011

REACTIONS (2)
  - Stoma complication [Recovering/Resolving]
  - Infusion site erythema [Recovered/Resolved]

NARRATIVE: CASE EVENT DATE: 20200312
